FAERS Safety Report 24075887 (Version 1)
Quarter: 2024Q3

REPORT INFORMATION
  Report Type: Spontaneous
  Country: US (occurrence: US)
  Receive Date: 20240710
  Receipt Date: 20240710
  Transmission Date: 20241016
  Serious: No
  Sender: PURDUE
  Company Number: US-PURDUE-USA-2024-0310647

PATIENT
  Age: 59 Year
  Sex: Male
  Weight: 120.2 kg

DRUGS (1)
  1. ACETAMINOPHEN\OXYCODONE HYDROCHLORIDE [Suspect]
     Active Substance: ACETAMINOPHEN\OXYCODONE HYDROCHLORIDE
     Indication: Pain management
     Dosage: 10/325 MILLIGRAM, PRN
     Route: 048
     Dates: start: 2023

REACTIONS (3)
  - Drug ineffective [Not Recovered/Not Resolved]
  - Drug withdrawal syndrome [Not Recovered/Not Resolved]
  - Product formulation issue [Unknown]

NARRATIVE: CASE EVENT DATE: 20240501
